FAERS Safety Report 7509154 (Version 3)
Quarter: 2013Q1

REPORT INFORMATION
  Report Type: Spontaneous
  Country: MX (occurrence: MX)
  Receive Date: 20100729
  Receipt Date: 20130312
  Transmission Date: 20140127
  Serious: Yes (Hospitalization, Other)
  Sender: FDA-Public Use
  Company Number: PHHY2010MX46874

PATIENT
  Age: 79 Year
  Sex: Female

DRUGS (1)
  1. ACLASTA [Suspect]
     Indication: OSTEOPOROSIS
     Dosage: 5 MG/100ML, UNK
     Route: 042
     Dates: start: 200903

REACTIONS (3)
  - Fall [Recovered/Resolved]
  - Femoral neck fracture [Recovered/Resolved]
  - Skeletal injury [Recovered/Resolved]
